FAERS Safety Report 5701072-4 (Version None)
Quarter: 2008Q2

REPORT INFORMATION
  Report Type: 
  Country: None (occurrence: None)
  Receive Date: 20080410
  Receipt Date: 20080327
  Transmission Date: 20081010
  Serious: Yes (Death)
  Sender: FDA-Public Use
  Company Number: NL-AMGEN-US272203

PATIENT
  Sex: Male

DRUGS (9)
  1. ENBREL [Suspect]
     Indication: RHEUMATOID ARTHRITIS
     Dates: start: 20060501, end: 20061201
  2. HUMIRA [Suspect]
     Indication: RHEUMATOID ARTHRITIS
     Dosage: UNK
     Dates: start: 20060401, end: 20060501
  3. MABTHERA [Suspect]
     Indication: RHEUMATOID ARTHRITIS
     Dosage: 2 TIMES 1000 MG
     Route: 042
     Dates: start: 20070201
  4. CALCICHEW-D3 [Concomitant]
  5. NEXIUM [Concomitant]
     Dosage: 400 MG
  6. FOLIC ACID [Concomitant]
     Dosage: 5 MG
     Dates: start: 20051101
  7. METHOTREXATE [Concomitant]
     Dates: start: 20051101
  8. DICLOFENAC SODIUM [Concomitant]
     Dosage: 75 MG SLOW RELEASE
     Dates: start: 20051101
  9. PREDNISONE [Concomitant]
     Dates: start: 20051101

REACTIONS (2)
  - DRUG INEFFECTIVE [None]
  - OESOPHAGEAL ADENOCARCINOMA METASTATIC [None]
